FAERS Safety Report 23133932 (Version 1)
Quarter: 2023Q4

REPORT INFORMATION
  Report Type: Spontaneous
  Country: US (occurrence: None)
  Receive Date: 20231031
  Receipt Date: 20231031
  Transmission Date: 20240109
  Serious: Yes (Other)
  Sender: FDA-Public Use
  Company Number: None

PATIENT
  Age: 46 Year
  Sex: Female
  Weight: 117 kg

DRUGS (7)
  1. ST. IVES BLACKHEAD CLEARING GREEN TEA SCRUB [Suspect]
     Active Substance: SALICYLIC ACID
     Indication: Skin cosmetic procedure
     Dates: start: 20231004, end: 20231004
  2. DEVICE [Concomitant]
     Active Substance: DEVICE
  3. FLUOXETINE [Concomitant]
     Active Substance: FLUOXETINE HYDROCHLORIDE
  4. MODAFINIL [Concomitant]
     Active Substance: MODAFINIL
  5. Women^s multivitamin [Concomitant]
  6. iron with vit-c [Concomitant]
  7. CHONDROITIN SULFATE (BOVINE)\GLUCOSAMINE HYDROCHLORIDE [Concomitant]
     Active Substance: CHONDROITIN SULFATE (BOVINE)\GLUCOSAMINE HYDROCHLORIDE

REACTIONS (1)
  - Urticaria [None]

NARRATIVE: CASE EVENT DATE: 20231030
